FAERS Safety Report 5630624-5 (Version None)
Quarter: 2008Q1

REPORT INFORMATION
  Report Type: 
  Country: None (occurrence: None)
  Receive Date: 20080219
  Receipt Date: 20080219
  Transmission Date: 20080703
  Serious: Yes (Death)
  Sender: FDA-Public Use
  Company Number: None

PATIENT
  Age: 53 Year
  Sex: Male
  Weight: 114.76 kg

DRUGS (1)
  1. HEPARIN [Suspect]

REACTIONS (11)
  - ADVERSE DRUG REACTION [None]
  - AGITATION [None]
  - ATRIAL FIBRILLATION [None]
  - BLOOD DISORDER [None]
  - CONFUSIONAL STATE [None]
  - DIARRHOEA [None]
  - INFECTION [None]
  - LOSS OF CONSCIOUSNESS [None]
  - PHARMACEUTICAL PRODUCT COMPLAINT [None]
  - RENAL DISORDER [None]
  - THERAPEUTIC PRODUCT CONTAMINATION [None]
